FAERS Safety Report 5749319-2 (Version None)
Quarter: 2008Q2

REPORT INFORMATION
  Report Type: 
  Country: None (occurrence: None)
  Receive Date: 20080527
  Receipt Date: 20080519
  Transmission Date: 20081010
  Serious: Yes (Hospitalization, Other)
  Sender: FDA-Public Use
  Company Number: US-AVENTIS-200813150US

PATIENT
  Sex: Female

DRUGS (2)
  1. LOVENOX [Suspect]
     Dosage: DOSE: UNK
  2. ACTONEL [Suspect]
     Dosage: DOSE: UNK

REACTIONS (9)
  - ANOREXIA [None]
  - ANXIETY [None]
  - BLOOD CHOLESTEROL INCREASED [None]
  - CHRONIC OBSTRUCTIVE PULMONARY DISEASE [None]
  - DIABETES MELLITUS [None]
  - HYPERTENSION [None]
  - MENTAL DISORDER [None]
  - PREMENSTRUAL SYNDROME [None]
  - PULMONARY EMBOLISM [None]
